FAERS Safety Report 13483355 (Version 1)
Quarter: 2017Q2

REPORT INFORMATION
  Report Type: Spontaneous
  Country: US (occurrence: US)
  Receive Date: 20170424
  Receipt Date: 20170424
  Transmission Date: 20170830
  Serious: No
  Sender: FDA-Public Use
  Company Number: US-ASTRAZENECA-2017SE41763

PATIENT
  Age: 54 Year
  Sex: Male
  Weight: 122.5 kg

DRUGS (2)
  1. GLIMEPIRIDE. [Concomitant]
     Active Substance: GLIMEPIRIDE
     Indication: DIABETES MELLITUS
     Route: 048
     Dates: start: 2015
  2. BYDUREON [Suspect]
     Active Substance: EXENATIDE
     Indication: BLOOD GLUCOSE ABNORMAL
     Route: 058

REACTIONS (6)
  - Drug dispensing error [Unknown]
  - Weight fluctuation [Unknown]
  - Injection site reaction [Unknown]
  - Drug dose omission [Unknown]
  - Intentional product misuse [Unknown]
  - Needle issue [Unknown]

NARRATIVE: CASE EVENT DATE: 2016
